FAERS Safety Report 5254077-4 (Version None)
Quarter: 2007Q1

REPORT INFORMATION
  Report Type: 
  Country: None (occurrence: None)
  Receive Date: 20070302
  Receipt Date: 20070224
  Transmission Date: 20070707
  Serious: Yes (Hospitalization)
  Sender: FDA-Public Use
  Company Number: US-AVENTIS-200711278US

PATIENT
  Age: 77 Year
  Sex: Female

DRUGS (8)
  1. LANTUS [Suspect]
     Dosage: DOSE: 12-14
  2. COREG [Concomitant]
     Dosage: DOSE: UNK
  3. ASPIRIN [Concomitant]
     Dosage: DOSE: UNK
  4. K-DUR 10 [Concomitant]
     Dosage: DOSE: UNK
  5. ZETIA [Concomitant]
     Dosage: DOSE: UNK
  6. ACCUPRIL [Concomitant]
     Dosage: DOSE: UNK
  7. LASIX [Concomitant]
     Dosage: DOSE: UNK
  8. SPIRONOLACTONE [Concomitant]
     Dosage: DOSE: UNK

REACTIONS (6)
  - BLOOD GLUCOSE INCREASED [None]
  - BLOOD PRESSURE INCREASED [None]
  - DRUG DOSE OMISSION [None]
  - DRUG INEFFECTIVE [None]
  - RENAL ARTERY OCCLUSION [None]
  - RENAL FUNCTION TEST ABNORMAL [None]
